FAERS Safety Report 4422539-5 (Version None)
Quarter: 2004Q3

REPORT INFORMATION
  Report Type: 
  Country: None (occurrence: None)
  Receive Date: 20040806
  Receipt Date: 20040723
  Transmission Date: 20050211
  Serious: Yes (Other)
  Sender: FDA-Public Use
  Company Number: 192941

PATIENT
  Age: 49 Year
  Sex: Female
  Weight: 128.368 kg

DRUGS (7)
  1. AVONEX [Suspect]
     Indication: MULTIPLE SCLEROSIS
     Dosage: 30 MCG QW IM
     Route: 030
     Dates: start: 20020101, end: 20031101
  2. AVONEX [Suspect]
     Indication: MULTIPLE SCLEROSIS
     Dosage: 30 MCG QW IM
     Route: 030
     Dates: start: 20031101
  3. LISINOPRIL [Concomitant]
  4. CLONIDINE HCL [Concomitant]
  5. CELEBREX [Concomitant]
  6. NEURONTIN [Concomitant]
  7. FOLIC ACID [Concomitant]

REACTIONS (12)
  - ABDOMINAL PAIN [None]
  - DEPRESSION [None]
  - DIABETES MELLITUS [None]
  - EMPHYSEMA [None]
  - HEPATIC PAIN [None]
  - HEPATIC STEATOSIS [None]
  - HEPATITIS [None]
  - INFLUENZA LIKE ILLNESS [None]
  - INJECTION SITE RASH [None]
  - INJECTION SITE SWELLING [None]
  - NASAL CONGESTION [None]
  - PYREXIA [None]
